FAERS Safety Report 8314698-9 (Version None)
Quarter: 2012Q2

REPORT INFORMATION
  Report Type: 
  Country: None (occurrence: None)
  Receive Date: 20120426
  Receipt Date: 20120418
  Transmission Date: 20120825
  Serious: No
  Sender: FDA-Public Use
  Company Number: US-ELI_LILLY_AND_COMPANY-US201201002284

PATIENT
  Sex: Male

DRUGS (5)
  1. ZYPREXA [Suspect]
     Indication: HALLUCINATION, AUDITORY
     Dosage: 10 MG, EACH EVENING
  2. DULOXETINE HYDROCHLORIDE [Suspect]
     Indication: MAJOR DEPRESSION
     Dosage: 30 MG, BID
  3. ZYPREXA [Suspect]
     Dosage: 5 MG Q4HPRN
  4. TRAZODONE HCL [Concomitant]
  5. SEROQUEL [Concomitant]

REACTIONS (1)
  - NO ADVERSE EVENT [None]
